FAERS Safety Report 17053400 (Version 1)
Quarter: 2019Q4

REPORT INFORMATION
  Report Type: Spontaneous
  Country: US (occurrence: US)
  Receive Date: 20191120
  Receipt Date: 20191120
  Transmission Date: 20200122
  Serious: Yes (Disabling, Other)
  Sender: FDA-Public Use
  Company Number: None

PATIENT
  Age: 48 Year
  Sex: Female
  Weight: 81 kg

DRUGS (19)
  1. SUMATRIPTAN. [Concomitant]
     Active Substance: SUMATRIPTAN
  2. VITAMIN B12 [Concomitant]
     Active Substance: CYANOCOBALAMIN
  3. FISH OIL [Concomitant]
     Active Substance: FISH OIL
  4. B6 [Concomitant]
     Active Substance: PYRIDOXINE HYDROCHLORIDE
  5. MAGNESIUM GLYCINATE [Concomitant]
     Active Substance: MAGNESIUM GLYCINATE
  6. VITAMIN D3 [Concomitant]
     Active Substance: CHOLECALCIFEROL
  7. EMGALITY [Suspect]
     Active Substance: GALCANEZUMAB-GNLM
     Indication: MIGRAINE
     Dosage: ?          OTHER FREQUENCY:MONTHLY INJECTION;?
     Route: 058
     Dates: start: 20191004, end: 20191031
  8. ATENOLOL. [Concomitant]
     Active Substance: ATENOLOL
  9. NAPROXEN. [Concomitant]
     Active Substance: NAPROXEN
  10. OMEGA 3 [Concomitant]
     Active Substance: OMEGA-3 FATTY ACIDS
  11. B2 [Concomitant]
  12. CALCIUM [Concomitant]
     Active Substance: CALCIUM
  13. VITAMIN C [Concomitant]
     Active Substance: ASCORBIC ACID
  14. TUMERIC [Concomitant]
     Active Substance: HERBALS\TURMERIC
  15. COENZYME [Concomitant]
     Active Substance: UBIDECARENONE
  16. VITAMIN B COMPLEX [Concomitant]
     Active Substance: CYANOCOBALAMIN\DEXPANTHENOL\NIACINAMIDE\PYRIDOXINE HYDROCHLORIDE\RIBOFLAVIN 5^-PHOSPHATE SODIUM\THIAMINE HYDROCHLORIDE\VITAMIN B COMPLEX
  17. IRON [Concomitant]
     Active Substance: IRON
  18. PRIMROSE OIL [Concomitant]
  19. VIT D [Concomitant]
     Active Substance: VITAMIN D NOS

REACTIONS (3)
  - Insurance issue [None]
  - Alopecia [None]
  - Migraine [None]

NARRATIVE: CASE EVENT DATE: 20191014
